FAERS Safety Report 11061984 (Version 1)
Quarter: 2015Q2

REPORT INFORMATION
  Report Type: Spontaneous
  Country: US (occurrence: US)
  Receive Date: 20150424
  Receipt Date: 20150424
  Transmission Date: 20150821
  Serious: No
  Sender: FDA-Public Use
  Company Number: US-009507513-1504USA020970

PATIENT
  Age: 32 Year
  Sex: Female
  Weight: 52.15 kg

DRUGS (1)
  1. NUVARING [Suspect]
     Active Substance: ETHINYL ESTRADIOL\ETONOGESTREL
     Indication: CONTRACEPTION
     Dosage: DOSE UNKNOWN, 3 WEEKS IN 1 WEEK REMOVAL
     Route: 067
     Dates: start: 2012

REACTIONS (2)
  - Device expulsion [Unknown]
  - Incorrect drug administration duration [Unknown]

NARRATIVE: CASE EVENT DATE: 20150419
